FAERS Safety Report 6848216-9 (Version None)
Quarter: 2010Q3

REPORT INFORMATION
  Report Type: 
  Country: None (occurrence: None)
  Receive Date: 20100716
  Receipt Date: 20100711
  Transmission Date: 20110219
  Serious: Yes (Other)
  Sender: FDA-Public Use
  Company Number: US-SANOFI-AVENTIS-2010SA040686

PATIENT
  Age: 65 Year
  Sex: Male

DRUGS (2)
  1. LANTUS [Suspect]
     Dosage: DOSE:65 UNIT(S)
     Route: 058
  2. OPTICLICK [Suspect]

REACTIONS (3)
  - BLINDNESS [None]
  - HYPOGLYCAEMIC UNCONSCIOUSNESS [None]
  - VISUAL IMPAIRMENT [None]
